FAERS Safety Report 21462839 (Version 5)
Quarter: 2023Q2

REPORT INFORMATION
  Report Type: Spontaneous
  Country: CA (occurrence: CA)
  Receive Date: 20221017
  Receipt Date: 20230412
  Transmission Date: 20230722
  Serious: Yes (Other)
  Sender: FDA-Public Use
  Company Number: CA-CELLTRION INC.-2022CA010395

PATIENT

DRUGS (8)
  1. INFLIXIMAB [Suspect]
     Active Substance: INFLIXIMAB
     Indication: Ankylosing spondylitis
     Dosage: UNK, Q2WEEKS
     Route: 058
     Dates: start: 20220627, end: 20221010
  2. INFLIXIMAB [Suspect]
     Active Substance: INFLIXIMAB
     Dosage: UNK, Q2WEEKS
     Route: 058
     Dates: start: 20220912
  3. INFLIXIMAB [Suspect]
     Active Substance: INFLIXIMAB
     Dosage: UNK, Q2WEEKS
     Route: 058
     Dates: start: 202205
  4. INFLIXIMAB [Suspect]
     Active Substance: INFLIXIMAB
     Dosage: 1 EVERY 2 WEEKS
     Route: 058
  5. INFLIXIMAB [Suspect]
     Active Substance: INFLIXIMAB
     Dosage: 1 EVERY 2 WEEKS
     Route: 058
  6. YUFLYMA [Suspect]
     Active Substance: ADALIMUMAB-AATY
     Indication: Ankylosing spondylitis
     Dosage: 40 MG, Q2WEEKS
     Route: 058
     Dates: start: 20221024
  7. YUFLYMA [Suspect]
     Active Substance: ADALIMUMAB-AATY
     Dosage: 40 MILLIGRAM, 1 EVERY 2 WEEKS
     Route: 058
  8. INFLIXIMAB [Suspect]
     Active Substance: INFLIXIMAB
     Indication: Ankylosing spondylitis
     Dosage: 1 EVERY 2 WEEKS
     Route: 058

REACTIONS (8)
  - Ankylosing spondylitis [Unknown]
  - Uveitis [Unknown]
  - Malaise [Unknown]
  - Pain [Unknown]
  - Product dose omission issue [Unknown]
  - Treatment delayed [Unknown]
  - Product distribution issue [Unknown]
  - Drug ineffective [Unknown]

NARRATIVE: CASE EVENT DATE: 20221016
